FAERS Safety Report 9313247 (Version 1)
Quarter: 2013Q2

REPORT INFORMATION
  Report Type: Spontaneous
  Country: US (occurrence: US)
  Receive Date: 20130528
  Receipt Date: 20130528
  Transmission Date: 20140414
  Serious: No
  Sender: FDA-Public Use
  Company Number: US-ABBOTT-13P-163-1064384-00

PATIENT
  Age: 63 Year
  Sex: Male
  Weight: 97.61 kg

DRUGS (5)
  1. ANDROGEL 1.62% [Suspect]
     Indication: BLOOD TESTOSTERONE DECREASED
     Dosage: ONE PUMP ACTUATION TWICE A DAY
     Dates: start: 201302, end: 201302
  2. ANDROGEL 1.62% [Suspect]
     Dosage: TWO PUMP ACTUATIONS ONCE A DAY
     Dates: start: 201302
  3. CHOLESTEROL MEDICATION [Concomitant]
     Indication: BLOOD CHOLESTEROL INCREASED
  4. HYPERTENSION MEDICATION [Concomitant]
     Indication: HYPERTENSION
  5. GOUT MEDICATION [Concomitant]
     Indication: GOUT

REACTIONS (1)
  - Inappropriate schedule of drug administration [Recovered/Resolved]
